FAERS Safety Report 18943469 (Version 2)
Quarter: 2021Q1

REPORT INFORMATION
  Report Type: Spontaneous
  Country: US (occurrence: US)
  Receive Date: 20210226
  Receipt Date: 20210302
  Transmission Date: 20210420
  Serious: Yes (Other)
  Sender: FDA-Public Use
  Company Number: US-ABBVIE-21K-163-3785504-00

PATIENT
  Sex: Female

DRUGS (1)
  1. HUMIRA [Suspect]
     Active Substance: ADALIMUMAB
     Indication: PRODUCT USED FOR UNKNOWN INDICATION
     Route: 058

REACTIONS (6)
  - Rheumatoid arthritis [Unknown]
  - Arthropathy [Unknown]
  - Feeling abnormal [Unknown]
  - Systemic lupus erythematosus [Unknown]
  - Osteoarthritis [Unknown]
  - Joint effusion [Unknown]

NARRATIVE: CASE EVENT DATE: 2020
